FAERS Safety Report 6987508-X (Version None)
Quarter: 2010Q3

REPORT INFORMATION
  Report Type: 
  Country: None (occurrence: None)
  Receive Date: 20100916
  Receipt Date: 20100908
  Transmission Date: 20110219
  Serious: No
  Sender: FDA-Public Use
  Company Number: US-PFIZER INC-2010114506

PATIENT
  Sex: Male
  Weight: 83.9 kg

DRUGS (6)
  1. VIAGRA [Suspect]
     Indication: ERECTILE DYSFUNCTION
     Dosage: 50 MG, AS NEEDED
     Route: 048
     Dates: start: 20080101
  2. ENALAPRIL [Concomitant]
     Indication: HYPERTENSION
     Dosage: 10 MG, DAILY
     Dates: start: 20050101
  3. LOVASTATIN [Concomitant]
     Indication: BLOOD CHOLESTEROL INCREASED
     Dosage: 40 MG, DAILY
     Route: 048
  4. ALLOPURINOL [Concomitant]
     Indication: GOUT
     Dosage: 100 MG, DAILY
     Route: 048
  5. MELOXICAM [Concomitant]
     Indication: ARTHRALGIA
     Dosage: 15 MG, DAILY
     Route: 048
     Dates: start: 20100101
  6. GABAPENTIN [Concomitant]
     Indication: ARTHRALGIA
     Dosage: 100 MG, 100 MG ONE TO THREE CAPSULES DAILY AT BED TIME
     Route: 048
     Dates: start: 20100101

REACTIONS (1)
  - DRUG INEFFECTIVE [None]
